FAERS Safety Report 4672362-1 (Version None)
Quarter: 2005Q2

REPORT INFORMATION
  Report Type: 
  Country: None (occurrence: None)
  Receive Date: 20050520
  Receipt Date: 20050511
  Transmission Date: 20051028
  Serious: Yes (Disabling, Other)
  Sender: FDA-Public Use
  Company Number: 2005-05-0678

PATIENT

DRUGS (4)
  1. PROVENTIL-HFA [Suspect]
     Dosage: ORAL AER INH
     Route: 055
  2. PREDNISOLONE [Suspect]
     Indication: ASTHMA EXACERBATION PROPHYLAXIS
     Dosage: 40 MG QD ORAL
     Route: 048
  3. STEROIDS (NOS) [Suspect]
     Dosage: INHALATION
     Route: 055
  4. LAMOTRIGINE [Concomitant]

REACTIONS (4)
  - CONDITION AGGRAVATED [None]
  - CONVULSION [None]
  - EPILEPSY [None]
  - GENERAL PHYSICAL HEALTH DETERIORATION [None]
